FAERS Safety Report 4688344-X (Version None)
Quarter: 2005Q2

REPORT INFORMATION
  Report Type: 
  Country: None (occurrence: None)
  Receive Date: 20050610
  Receipt Date: 20050322
  Transmission Date: 20051028
  Serious: Yes (Hospitalization)
  Sender: FDA-Public Use
  Company Number: BE-MERCK-0504BEL00011

PATIENT
  Age: 57 Year
  Sex: Female
  Weight: 60 kg

DRUGS (8)
  1. [THERAPY UNSPECIFIED] [Concomitant]
     Indication: MENOPAUSE
     Route: 048
  2. [THERAPY UNSPECIFIED] [Concomitant]
     Route: 061
  3. [THERAPY UNSPECIFIED] [Concomitant]
     Route: 065
     Dates: end: 20050402
  4. FOSAMAX [Suspect]
     Indication: OSTEOPOROSIS
     Route: 048
     Dates: start: 20050220, end: 20050327
  5. DIPYRIDAMOLE [Concomitant]
     Indication: MENOPAUSE
     Route: 048
     Dates: end: 20050402
  6. ESTRADIOL [Concomitant]
     Indication: MENOPAUSE
     Route: 061
     Dates: end: 20050402
  7. ESTRADIOL [Concomitant]
     Route: 067
     Dates: end: 20050402
  8. [THERAPY UNSPECIFIED] [Concomitant]
     Route: 048
     Dates: end: 20050402

REACTIONS (9)
  - AEROPHAGIA [None]
  - FALL [None]
  - FATIGUE [None]
  - LOWER LIMB FRACTURE [None]
  - MALAISE [None]
  - MULTIPLE FRACTURES [None]
  - SURGERY [None]
  - TINNITUS [None]
  - VERTIGO [None]
